FAERS Safety Report 5527197-4 (Version None)
Quarter: 2007Q4

REPORT INFORMATION
  Report Type: 
  Country: None (occurrence: None)
  Receive Date: 20071121
  Receipt Date: 20071113
  Transmission Date: 20080405
  Serious: Yes (Hospitalization)
  Sender: FDA-Public Use
  Company Number: 2007SP022982

PATIENT
  Age: 65 Year
  Sex: Female

DRUGS (6)
  1. PEG-INTRON [Suspect]
     Indication: HEPATITIS C
     Dosage: SC
     Route: 058
     Dates: start: 20070608, end: 20070629
  2. RIBAVIRIN [Suspect]
     Indication: HEPATITIS C
     Dosage: PO
     Route: 048
     Dates: start: 20070608, end: 20070629
  3. ALBUTEROL [Concomitant]
  4. SPIRIVA [Concomitant]
  5. ESTROGEN [Concomitant]
  6. BROVANA (ARFORMOTEROL TARTRATE) [Concomitant]

REACTIONS (6)
  - ALOPECIA [None]
  - CHRONIC OBSTRUCTIVE PULMONARY DISEASE [None]
  - CONDITION AGGRAVATED [None]
  - CYSTOCELE [None]
  - LUNG INFECTION [None]
  - RECTOCELE [None]
